FAERS Safety Report 23269830 (Version 3)
Quarter: 2024Q1

REPORT INFORMATION
  Report Type: Other
  Country: BE (occurrence: None)
  Receive Date: 20231207
  Receipt Date: 20240308
  Transmission Date: 20240409
  Serious: No
  Sender: FDA-Public Use
  Company Number: BE-ROCHE-3470314

PATIENT
  Age: 41 Year
  Sex: Female
  Weight: 59.4 kg

DRUGS (19)
  1. OCRELIZUMAB [Suspect]
     Active Substance: OCRELIZUMAB
     Indication: Relapsing-remitting multiple sclerosis
     Route: 042
     Dates: start: 20191003
  2. OCRELIZUMAB [Suspect]
     Active Substance: OCRELIZUMAB
     Route: 042
     Dates: start: 20231123, end: 20231123
  3. OCRELIZUMAB [Suspect]
     Active Substance: OCRELIZUMAB
     Route: 042
     Dates: start: 20221006, end: 20221006
  4. OCRELIZUMAB [Suspect]
     Active Substance: OCRELIZUMAB
     Route: 042
     Dates: start: 20200528, end: 20200528
  5. OCRELIZUMAB [Suspect]
     Active Substance: OCRELIZUMAB
     Route: 042
     Dates: start: 20220127, end: 20220127
  6. OCRELIZUMAB [Suspect]
     Active Substance: OCRELIZUMAB
     Route: 042
     Dates: start: 20230522, end: 20230522
  7. OCRELIZUMAB [Suspect]
     Active Substance: OCRELIZUMAB
     Route: 042
     Dates: start: 20210715, end: 20210715
  8. OCRELIZUMAB [Suspect]
     Active Substance: OCRELIZUMAB
     Route: 042
     Dates: start: 20191017, end: 20191017
  9. OCRELIZUMAB [Suspect]
     Active Substance: OCRELIZUMAB
     Route: 042
     Dates: start: 20201217, end: 20201217
  10. MOVICOL [Concomitant]
     Active Substance: POLYETHYLENE GLYCOL 3350\POTASSIUM CHLORIDE\SODIUM BICARBONATE\SODIUM CHLORIDE
     Route: 048
     Dates: start: 2015
  11. SYMBICORT [Concomitant]
     Active Substance: BUDESONIDE\FORMOTEROL FUMARATE DIHYDRATE
     Dosage: 1 PUFF
     Route: 048
     Dates: start: 2013
  12. LAXAVIT [Concomitant]
  13. DAFALGAN [Concomitant]
     Active Substance: ACETAMINOPHEN
  14. TRAMADOL HYDROCHLORIDE [Concomitant]
     Active Substance: TRAMADOL HYDROCHLORIDE
  15. TRAZODONE HYDROCHLORIDE [Concomitant]
     Active Substance: TRAZODONE HYDROCHLORIDE
  16. BACLOFEN [Concomitant]
     Active Substance: BACLOFEN
  17. ETHINYL ESTRADIOL\LEVONORGESTREL ACETATE [Concomitant]
     Active Substance: ETHINYL ESTRADIOL\LEVONORGESTREL ACETATE
     Route: 048
     Dates: start: 2016
  18. CYPROTERONE ACETATE [Concomitant]
     Active Substance: CYPROTERONE ACETATE
     Route: 048
     Dates: start: 2016
  19. CYANOCOBALAMIN\FOLIC ACID\PYRIDOXINE HYDROCHLORIDE [Concomitant]
     Active Substance: CYANOCOBALAMIN\FOLIC ACID\PYRIDOXINE HYDROCHLORIDE
     Route: 048
     Dates: start: 2019

REACTIONS (1)
  - COVID-19 [Recovered/Resolved]

NARRATIVE: CASE EVENT DATE: 20231101
